FAERS Safety Report 5878332-X (Version None)
Quarter: 2008Q3

REPORT INFORMATION
  Report Type: 
  Country: None (occurrence: None)
  Receive Date: 20080911
  Receipt Date: 20080903
  Transmission Date: 20090109
  Serious: Yes (Hospitalization)
  Sender: FDA-Public Use
  Company Number: US-SANOFI-SYNTHELABO-F03200800095

PATIENT
  Sex: Male
  Weight: 87.2 kg

DRUGS (4)
  1. OXALIPLATIN [Suspect]
     Indication: OESOPHAGEAL CARCINOMA
     Route: 042
     Dates: start: 20080825, end: 20080825
  2. OXALIPLATIN [Suspect]
     Route: 042
     Dates: start: 20080818, end: 20080818
  3. CAPECITABINE [Suspect]
     Indication: OESOPHAGEAL CARCINOMA
     Route: 048
     Dates: start: 20080101
  4. CAPECITABINE [Suspect]
     Route: 048
     Dates: start: 20080101

REACTIONS (6)
  - ABDOMINAL DISTENSION [None]
  - ASCITES [None]
  - PERICARDIAL EFFUSION [None]
  - PLEURAL EFFUSION [None]
  - PYREXIA [None]
  - TRANSAMINASES INCREASED [None]
